FAERS Safety Report 9772948 (Version 1)
Quarter: 2013Q4

REPORT INFORMATION
  Report Type: Spontaneous
  Country: US (occurrence: US)
  Receive Date: 20131219
  Receipt Date: 20131219
  Transmission Date: 20140711
  Serious: No
  Sender: FDA-Public Use
  Company Number: US-MYLANLABS-2013S1010230

PATIENT
  Age: 64 Year
  Sex: Female
  Weight: 72.12 kg

DRUGS (4)
  1. PROPRANOLOL HYDROCHLORIDE TABLETS, USP [Suspect]
     Indication: ARRHYTHMIA
     Route: 048
     Dates: end: 20130503
  2. PROPRANOLOL HYDROCHLORIDE TABLETS, USP [Suspect]
     Indication: ARRHYTHMIA
     Route: 048
     Dates: start: 20130505
  3. PRILOSEC [Concomitant]
     Indication: DYSPEPSIA
  4. ASA [Concomitant]

REACTIONS (4)
  - Headache [Recovered/Resolved]
  - Dizziness [Recovered/Resolved]
  - Diarrhoea [Recovered/Resolved]
  - Muscle spasms [Recovered/Resolved]
